FAERS Safety Report 5750565-2 (Version None)
Quarter: 2008Q2

REPORT INFORMATION
  Report Type: 
  Country: None (occurrence: None)
  Receive Date: 20080523
  Receipt Date: 20080523
  Transmission Date: 20081010
  Serious: Yes (Other)
  Sender: FDA-Public Use
  Company Number: None

PATIENT
  Age: 69 Year
  Sex: Female

DRUGS (5)
  1. ALTEPLASE [Suspect]
     Indication: ARTERIAL THROMBOSIS
     Dosage: 8.3 MG IN 1000 ML NS INFUSION IV
     Route: 042
     Dates: start: 20080507, end: 20080507
  2. HYDROMORPHONE HCL [Concomitant]
  3. MORPHINE [Concomitant]
  4. CEFAZOLIN [Concomitant]
  5. HEPARIN [Concomitant]

REACTIONS (2)
  - BLOOD FIBRINOGEN DECREASED [None]
  - HAEMATURIA [None]
